FAERS Safety Report 9337109 (Version 5)
Quarter: 2013Q3

REPORT INFORMATION
  Report Type: Spontaneous
  Country: CO (occurrence: CO)
  Receive Date: 20130606
  Receipt Date: 20130815
  Transmission Date: 20140515
  Serious: Yes (Other)
  Sender: FDA-Public Use
  Company Number: CO-VERTEX PHARMACEUTICALS INC-2013-006776

PATIENT
  Age: 57 Year
  Sex: Female
  Weight: 60 kg

DRUGS (4)
  1. INCIVO [Suspect]
     Indication: HEPATITIS C
     Dosage: 750 MG, TID
     Route: 048
     Dates: start: 20130524
  2. INTERFERON [Concomitant]
     Indication: HEPATITIS C
     Dosage: DOSAGE FORM: AMPOULES
     Route: 030
     Dates: start: 20130524
  3. RIBAVIRIN [Concomitant]
     Indication: HEPATITIS C
     Dosage: 2 TABLETS IN THE AM, 3 TABLETS IN THE PM
     Route: 048
     Dates: start: 20130524
  4. CHOLESTYRAMINE [Concomitant]
     Indication: PRODUCT USED FOR UNKNOWN INDICATION
     Dosage: DOSAGE FORM: POWDER
     Route: 048
     Dates: start: 20130724

REACTIONS (8)
  - Anorectal disorder [Unknown]
  - Pruritus [Not Recovered/Not Resolved]
  - Rash [Unknown]
  - Burning sensation [Recovered/Resolved]
  - Nausea [Unknown]
  - Vomiting [Unknown]
  - Dermatitis [Unknown]
  - Diarrhoea [Unknown]
